FAERS Safety Report 23285745 (Version 1)
Quarter: 2023Q4

REPORT INFORMATION
  Report Type: Spontaneous
  Country: US (occurrence: US)
  Receive Date: 20231212
  Receipt Date: 20231212
  Transmission Date: 20240110
  Serious: No
  Sender: FDA-Public Use
  Company Number: US-GUERBET / LLC-US-20230073

PATIENT
  Age: 45 Year
  Sex: Male

DRUGS (1)
  1. DOTAREM [Suspect]
     Active Substance: GADOTERATE MEGLUMINE
     Indication: Product used for unknown indication
     Route: 065
     Dates: start: 20230914, end: 20230914

REACTIONS (3)
  - Urticaria [Unknown]
  - Pruritus [Unknown]
  - Dry throat [Unknown]

NARRATIVE: CASE EVENT DATE: 20230914
